FAERS Safety Report 22162289 (Version 1)
Quarter: 2023Q1

REPORT INFORMATION
  Report Type: Report from Study
  Country: GB (occurrence: GB)
  Receive Date: 20230331
  Receipt Date: 20230331
  Transmission Date: 20230417
  Serious: Yes (Other)
  Sender: FDA-Public Use
  Company Number: GB-002147023-NVSC2023GB073298

PATIENT
  Age: 63 Year
  Sex: Female

DRUGS (1)
  1. MAYZENT [Suspect]
     Active Substance: SIPONIMOD
     Indication: Secondary progressive multiple sclerosis
     Dosage: 2 MG, QD
     Route: 048
     Dates: start: 20220824

REACTIONS (3)
  - Glaucoma [Unknown]
  - Post procedural swelling [Recovered/Resolved]
  - Post procedural contusion [Unknown]

NARRATIVE: CASE EVENT DATE: 20230110
